FAERS Safety Report 11107256 (Version 1)
Quarter: 2015Q2

REPORT INFORMATION
  Report Type: Spontaneous
  Country: US (occurrence: None)
  Receive Date: 20150511
  Receipt Date: 20150511
  Transmission Date: 20150821
  Serious: No
  Sender: FDA-Public Use
  Company Number: None

PATIENT
  Age: 93 Year
  Sex: Female
  Weight: 59.88 kg

DRUGS (6)
  1. ZOLEULID [Concomitant]
  2. INDAPAMIDE. [Concomitant]
     Active Substance: INDAPAMIDE
  3. DEPITANT [Concomitant]
  4. ASPIRIN. [Concomitant]
     Active Substance: ASPIRIN
  5. LOSARTAN [Concomitant]
     Active Substance: LOSARTAN
  6. LINZESS [Suspect]
     Active Substance: LINACLOTIDE
     Indication: MOVEMENT DISORDER
     Dosage: BY MOUTH
     Dates: start: 20150330, end: 20150331

REACTIONS (1)
  - Abdominal pain upper [None]
